FAERS Safety Report 5669903-4 (Version None)
Quarter: 2008Q1

REPORT INFORMATION
  Report Type: 
  Country: None (occurrence: None)
  Receive Date: 20080314
  Receipt Date: 20080314
  Transmission Date: 20080703
  Serious: Yes (Other)
  Sender: FDA-Public Use
  Company Number: None

PATIENT
  Sex: Male
  Weight: 83.9154 kg

DRUGS (1)
  1. AMBIEN CR [Suspect]
     Indication: POOR QUALITY SLEEP
     Dosage: ONE AT BEDTIME NOV, DEC, JAN, FEB

REACTIONS (1)
  - DIARRHOEA [None]
